FAERS Safety Report 15393804 (Version 1)
Quarter: 2018Q3

REPORT INFORMATION
  Report Type: Report from Study
  Country: TW (occurrence: TW)
  Receive Date: 20180917
  Receipt Date: 20180917
  Transmission Date: 20181010
  Serious: Yes (Hospitalization)
  Sender: FDA-Public Use
  Company Number: TW-B.I. PHARMACEUTICALS,INC./RIDGEFIELD-2014-BI-06433BI

PATIENT
  Age: 55 Year
  Sex: Male

DRUGS (6)
  1. BIBW 2992 [Suspect]
     Active Substance: AFATINIB
     Dosage: STRENGTH: 50MG/M2
     Route: 042
     Dates: start: 20140204, end: 20140211
  2. BIBW 2992 [Suspect]
     Active Substance: AFATINIB
     Dosage: STRENGTH: 40MG/M2
     Route: 042
     Dates: start: 20140225, end: 20140304
  3. ACTEIN [Concomitant]
     Indication: COUGH
     Route: 065
  4. BIBW 2992 [Suspect]
     Active Substance: AFATINIB
     Indication: SQUAMOUS CELL CARCINOMA OF HEAD AND NECK
     Dosage: STRENGTH: 40MG/M2
     Route: 042
     Dates: start: 20140114
  5. BIBW 2992 [Suspect]
     Active Substance: AFATINIB
     Dosage: STRENGTH: 40MG/M2
     Route: 042
     Dates: start: 20140121
  6. BIBW 2992 [Suspect]
     Active Substance: AFATINIB
     Dosage: STRENGTH: 50MG/M2
     Route: 042
     Dates: start: 20140128

REACTIONS (7)
  - Mucosal inflammation [Recovered/Resolved]
  - Hypokalaemia [Recovered/Resolved]
  - Infection [Recovered/Resolved]
  - Hypocalcaemia [Recovered/Resolved]
  - Leukopenia [Recovered/Resolved]
  - Tumour haemorrhage [Recovered/Resolved]
  - Hypophosphataemia [Recovered/Resolved]

NARRATIVE: CASE EVENT DATE: 20140206
